FAERS Safety Report 8507670-7 (Version None)
Quarter: 2012Q3

REPORT INFORMATION
  Report Type: 
  Country: None (occurrence: None)
  Receive Date: 20120713
  Receipt Date: 20120705
  Transmission Date: 20120928
  Serious: Yes (Hospitalization, Other)
  Sender: FDA-Public Use
  Company Number: US-BRISTOL-MYERS SQUIBB COMPANY-15129158

PATIENT
  Age: 70 Year
  Sex: Female
  Weight: 64 kg

DRUGS (1)
  1. ORENCIA [Suspect]
     Indication: RHEUMATOID ARTHRITIS
     Dosage: STARTED JAN08 OR FEB08 TOOK ORENCIA SUBQ A MONTH AGO LAST INF: JUL/AUG2010
     Route: 042
     Dates: start: 20080101

REACTIONS (10)
  - NAUSEA [None]
  - FIBROMYALGIA [None]
  - DEPRESSION [None]
  - BLOOD CHOLESTEROL INCREASED [None]
  - HIP ARTHROPLASTY [None]
  - HYPERAESTHESIA [None]
  - HEADACHE [None]
  - NEUROPATHY PERIPHERAL [None]
  - ANAPHYLACTIC REACTION [None]
  - MEDICATION ERROR [None]
